FAERS Safety Report 15740580 (Version 1)
Quarter: 2018Q4

REPORT INFORMATION
  Report Type: Spontaneous
  Country: AU (occurrence: AU)
  Receive Date: 20181219
  Receipt Date: 20181219
  Transmission Date: 20190205
  Serious: Yes (Hospitalization)
  Sender: FDA-Public Use
  Company Number: AU-ACTELION-A-CH2018-183777

PATIENT
  Age: 80 Year
  Sex: Female

DRUGS (12)
  1. THYROXINE [Concomitant]
     Active Substance: LEVOTHYROXINE
     Dosage: 50 MCG, QD
     Route: 048
  2. ACETAZOLAMIDE. [Concomitant]
     Active Substance: ACETAZOLAMIDE
     Dosage: 125 MG, QD
     Route: 048
  3. FLUTICASONE. [Concomitant]
     Active Substance: FLUTICASONE
     Dosage: 100/25 MCG
     Route: 055
  4. FUROSEMIDE. [Concomitant]
     Active Substance: FUROSEMIDE
     Dosage: 250 MG, QD
     Route: 048
  5. UMECLIDINIUM [Concomitant]
     Active Substance: UMECLIDINIUM BROMIDE
     Dosage: 62.5 MCG
     Route: 055
  6. OPTIVAR [Concomitant]
     Active Substance: AZELASTINE HYDROCHLORIDE
     Dosage: ONE DROP EACH EYE
  7. METOPROLOL. [Concomitant]
     Active Substance: METOPROLOL
     Dosage: 25 MG, BID
     Route: 048
  8. LANTUS [Concomitant]
     Active Substance: INSULIN GLARGINE
     Dosage: 38 DF, QD
     Route: 058
  9. SPIRONOLACTONE. [Concomitant]
     Active Substance: SPIRONOLACTONE
     Dosage: 25 MG, BID
     Route: 048
  10. TAFLUPROST [Concomitant]
     Active Substance: TAFLUPROST
     Dosage: 1 DROP EACH EYE
  11. TRACLEER [Suspect]
     Active Substance: BOSENTAN
     Indication: PULMONARY ARTERIAL HYPERTENSION
     Dosage: 125 MG, BID
     Route: 048
     Dates: end: 20181207
  12. APIXABAN [Concomitant]
     Active Substance: APIXABAN

REACTIONS (3)
  - Constipation [Unknown]
  - Urinary tract infection [Recovered/Resolved]
  - Delirium [Recovered/Resolved]

NARRATIVE: CASE EVENT DATE: 20181120
